FAERS Safety Report 4903410-9 (Version None)
Quarter: 2006Q1

REPORT INFORMATION
  Report Type: 
  Country: None (occurrence: None)
  Receive Date: 20060203
  Receipt Date: 20060125
  Transmission Date: 20060701
  Serious: Yes (Death, Hospitalization)
  Sender: FDA-Public Use
  Company Number: 2006-01-1495

PATIENT
  Age: 60 Year
  Sex: Female
  Weight: 60 kg

DRUGS (2)
  1. REBETOL [Suspect]
     Indication: HEPATITIS C
     Dosage: 800 MG QD ORAL
     Route: 048
     Dates: start: 20051024, end: 20051219
  2. PEGASYS [Suspect]
     Indication: HEPATITIS C
     Dosage: 1 DOSE QWK SUBCUTANEOUS
     Route: 058
     Dates: start: 20051024, end: 20051219

REACTIONS (3)
  - BRONCHOPULMONARY ASPERGILLOSIS [None]
  - MENINGORRHAGIA [None]
  - PANCYTOPENIA [None]
